FAERS Safety Report 4921103-9 (Version None)
Quarter: 2006Q1

REPORT INFORMATION
  Report Type: 
  Country: None (occurrence: None)
  Receive Date: 20060223
  Receipt Date: 20051214
  Transmission Date: 20060701
  Serious: Yes (Hospitalization)
  Sender: FDA-Public Use
  Company Number: US-MERCK-0512USA02373

PATIENT
  Age: 55 Year
  Sex: Female
  Weight: 123 kg

DRUGS (2)
  1. VIOXX [Suspect]
     Route: 048
     Dates: start: 20020101, end: 20020725
  2. VIOXX [Suspect]
     Route: 048

REACTIONS (1)
  - MYOCARDIAL INFARCTION [None]
